FAERS Safety Report 6153591-7 (Version None)
Quarter: 2009Q2

REPORT INFORMATION
  Report Type: 
  Country: None (occurrence: None)
  Receive Date: 20090413
  Receipt Date: 20090402
  Transmission Date: 20091009
  Serious: Yes (Hospitalization, Other)
  Sender: FDA-Public Use
  Company Number: US-BAXTER-2009BH005521

PATIENT
  Age: 69 Year
  Sex: Male

DRUGS (3)
  1. EXTRANEAL [Suspect]
     Indication: PERITONEAL DIALYSIS
     Route: 033
     Dates: start: 20080701, end: 20090106
  2. DIANEAL [Suspect]
     Indication: PERITONEAL DIALYSIS
     Route: 033
     Dates: start: 20080501, end: 20090106
  3. INSULIN [Suspect]
     Indication: BLOOD GLUCOSE FALSE POSITIVE
     Route: 065

REACTIONS (5)
  - BLOOD GLUCOSE FALSE POSITIVE [None]
  - DEVICE INTERACTION [None]
  - HYPOGLYCAEMIA [None]
  - MEDICATION ERROR [None]
  - MYOCARDIAL INFARCTION [None]
